FAERS Safety Report 10108830 (Version 1)
Quarter: 2014Q2

REPORT INFORMATION
  Report Type: Spontaneous
  Country: US (occurrence: US)
  Receive Date: 20140425
  Receipt Date: 20140425
  Transmission Date: 20141212
  Serious: Yes (Other)
  Sender: FDA-Public Use
  Company Number: 2014SP000105

PATIENT
  Age: 52 Year
  Sex: Female

DRUGS (2)
  1. METHOTREXATE [Suspect]
     Indication: PRODUCT USED FOR UNKNOWN INDICATION
     Route: 058
  2. ENBREL [Suspect]
     Indication: PSORIATIC ARTHROPATHY
     Route: 065
     Dates: start: 201310, end: 20131228

REACTIONS (3)
  - Bronchitis [Not Recovered/Not Resolved]
  - Alopecia [Not Recovered/Not Resolved]
  - Abdominal discomfort [Not Recovered/Not Resolved]
